FAERS Safety Report 10365085 (Version 1)
Quarter: 2014Q3

REPORT INFORMATION
  Report Type: Spontaneous
  Country: FR (occurrence: FR)
  Receive Date: 20140806
  Receipt Date: 20140806
  Transmission Date: 20150326
  Serious: Yes (Hospitalization)
  Sender: FDA-Public Use
  Company Number: FR-SA-2014SA103174

PATIENT
  Age: 55 Year
  Sex: Male

DRUGS (3)
  1. RIFADINE [Suspect]
     Active Substance: RIFAMPIN
     Indication: TESTICULAR ABSCESS
     Route: 048
     Dates: start: 20140706, end: 20140707
  2. RIFADINE [Suspect]
     Active Substance: RIFAMPIN
     Indication: TESTICULAR ABSCESS
     Route: 048
     Dates: start: 20140715, end: 20140715
  3. BACTRIM [Suspect]
     Active Substance: SULFAMETHOXAZOLE\TRIMETHOPRIM
     Indication: TESTICULAR ABSCESS
     Route: 048
     Dates: start: 20140705, end: 20140714

REACTIONS (2)
  - Neutropenia [Recovered/Resolved]
  - Agranulocytosis [Recovered/Resolved]

NARRATIVE: CASE EVENT DATE: 20140707
